FAERS Safety Report 4622662-6 (Version None)
Quarter: 2005Q1

REPORT INFORMATION
  Report Type: 
  Country: None (occurrence: None)
  Receive Date: 20050330
  Receipt Date: 20041203
  Transmission Date: 20050727
  Serious: No
  Sender: FDA-Public Use
  Company Number: US-BRISTOL-MYERS SQUIBB COMPANY-12783676

PATIENT
  Age: 10 Year
  Sex: Female
  Weight: 36 kg

DRUGS (3)
  1. REYATAZ [Suspect]
     Indication: HIV INFECTION
     Route: 048
     Dates: start: 20031230, end: 20040121
  2. NORVIR [Concomitant]
  3. COMBIVIR [Concomitant]

REACTIONS (1)
  - HYPERBILIRUBINAEMIA [None]
